FAERS Safety Report 9869694 (Version 1)
Quarter: 2014Q1

REPORT INFORMATION
  Report Type: Spontaneous
  Country: US (occurrence: None)
  Receive Date: 20140203
  Receipt Date: 20140203
  Transmission Date: 20141002
  Serious: No
  Sender: FDA-Public Use
  Company Number: None

PATIENT
  Age: 17 Year
  Sex: Male
  Weight: 55.9 kg

DRUGS (1)
  1. CYTARABINE [Suspect]
     Route: 037
     Dates: end: 20140128

REACTIONS (3)
  - Hypertension [None]
  - Cold sweat [None]
  - Unresponsive to stimuli [None]
